FAERS Safety Report 6718995-X (Version None)
Quarter: 2010Q2

REPORT INFORMATION
  Report Type: 
  Country: None (occurrence: None)
  Receive Date: 20100511
  Receipt Date: 20100430
  Transmission Date: 20101027
  Serious: Yes (Life-Threatening, Hospitalization)
  Sender: FDA-Public Use
  Company Number: IE-JNJFOC-20100108092

PATIENT
  Sex: Female

DRUGS (6)
  1. CAELYX [Suspect]
     Indication: OVARIAN CANCER METASTATIC
     Route: 042
  2. NEXIUM [Concomitant]
     Route: 065
  3. LEVOMEPROMAZINE MALEATE [Concomitant]
  4. MOTILIUM [Concomitant]
     Route: 065
  5. ZOPICLONE [Concomitant]
  6. MST [Concomitant]
     Route: 065

REACTIONS (4)
  - ANAPHYLACTIC REACTION [None]
  - MALIGNANT NEOPLASM PROGRESSION [None]
  - RESPIRATORY ARREST [None]
  - RESPIRATORY FAILURE [None]
